FAERS Safety Report 7301237-4 (Version None)
Quarter: 2011Q1

REPORT INFORMATION
  Report Type: 
  Country: None (occurrence: None)
  Receive Date: 20110218
  Receipt Date: 20110209
  Transmission Date: 20110831
  Serious: Yes (Death, Life-Threatening)
  Sender: FDA-Public Use
  Company Number: JP-GENZYME-THYM-1001827

PATIENT
  Sex: Male
  Weight: 74 kg

DRUGS (18)
  1. THYMOGLOBULIN [Suspect]
     Indication: APLASTIC ANAEMIA
     Dosage: 275 MG, QD
     Route: 042
     Dates: start: 20100705, end: 20100710
  2. TEICOPLANIN [Concomitant]
     Dosage: UNK
     Dates: start: 20100813, end: 20100819
  3. CYCLOPHOSPHAMIDE [Concomitant]
     Indication: APLASTIC ANAEMIA
     Dosage: UNK
     Dates: start: 20100706, end: 20100823
  4. CEFOZOPRAN HYDROCHLORIDE [Concomitant]
     Indication: INFECTION PROPHYLAXIS
     Dosage: UNK
     Dates: start: 20100703, end: 20100711
  5. BIAPENEM [Concomitant]
     Indication: INFECTION PROPHYLAXIS
     Dosage: UNK
     Dates: start: 20100726, end: 20100812
  6. ITRACONAZOLE [Concomitant]
     Indication: INFECTION PROPHYLAXIS
     Dosage: UNK
     Dates: start: 20100625, end: 20100728
  7. FILGRASTIM [Concomitant]
     Indication: APLASTIC ANAEMIA
     Dosage: UNK
     Dates: start: 20100706, end: 20100827
  8. TEICOPLANIN [Concomitant]
     Indication: INFECTION PROPHYLAXIS
     Dosage: UNK
     Dates: start: 20100712, end: 20100725
  9. SULFAMETHOPRIM [Concomitant]
     Indication: INFECTION PROPHYLAXIS
     Dosage: UNK
     Dates: start: 20100625, end: 20100728
  10. MICAFUNGIN SODIUM [Concomitant]
     Indication: INFECTION PROPHYLAXIS
     Dosage: UNK
     Dates: start: 20100729, end: 20100808
  11. METHYLPREDNISOLONE SODIUM SUCCINATE [Concomitant]
     Indication: PREMEDICATION
     Dosage: UNK
     Dates: start: 20100706, end: 20100710
  12. GANCICLOVIR [Concomitant]
     Indication: INFECTION PROPHYLAXIS
     Dosage: UNK
     Dates: start: 20100804, end: 20100812
  13. HUMAN RED BLOOD CELLS [Concomitant]
     Indication: APLASTIC ANAEMIA
     Dosage: UNK
     Dates: start: 20100623, end: 20100826
  14. PREDNISOLONE SODIUM SUCCINATE INJ [Concomitant]
     Indication: PREMEDICATION
     Dosage: UNK
     Dates: start: 20100711, end: 20100809
  15. ARBEKACIN SULFATE [Concomitant]
     Indication: INFECTION PROPHYLAXIS
     Dosage: UNK
     Dates: start: 20100726, end: 20100807
  16. PANIPENEM [Concomitant]
     Indication: INFECTION PROPHYLAXIS
     Dosage: UNK
     Dates: start: 20100813, end: 20100824
  17. NEUPOGEN [Concomitant]
     Indication: APLASTIC ANAEMIA
  18. PLATELETS [Concomitant]
     Indication: APLASTIC ANAEMIA
     Dosage: UNK
     Dates: start: 20100622, end: 20100826

REACTIONS (6)
  - RENAL FAILURE ACUTE [None]
  - ESCHERICHIA SEPSIS [None]
  - ENTEROCOCCAL SEPSIS [None]
  - SEPSIS [None]
  - THERAPEUTIC RESPONSE DECREASED [None]
  - HAEMODIALYSIS [None]
